FAERS Safety Report 12119822 (Version 2)
Quarter: 2017Q2

REPORT INFORMATION
  Report Type: Spontaneous
  Country: US (occurrence: US)
  Receive Date: 20160226
  Receipt Date: 20170516
  Transmission Date: 20170829
  Serious: No
  Sender: FDA-Public Use
  Company Number: US-ASTRAZENECA-2007BM08959

PATIENT
  Age: 66 Year
  Sex: Female

DRUGS (7)
  1. BYETTA [Suspect]
     Active Substance: EXENATIDE
     Indication: TYPE 2 DIABETES MELLITUS
     Route: 058
     Dates: start: 200703
  2. LEVEMIR [Concomitant]
     Active Substance: INSULIN DETEMIR
     Indication: INSULIN-REQUIRING TYPE 2 DIABETES MELLITUS
     Dosage: UNKNOWN
  3. BYDUREON [Suspect]
     Active Substance: EXENATIDE
     Indication: TYPE 2 DIABETES MELLITUS
     Route: 058
  4. BYETTA [Suspect]
     Active Substance: EXENATIDE
     Indication: TYPE 2 DIABETES MELLITUS
     Route: 058
     Dates: start: 2007
  5. STARLIX [Concomitant]
     Active Substance: NATEGLINIDE
     Indication: TYPE 2 DIABETES MELLITUS
     Dosage: UNK, TID
  6. ACTOS [Concomitant]
     Active Substance: PIOGLITAZONE HYDROCHLORIDE
     Indication: TYPE 2 DIABETES MELLITUS
     Dosage: UNK
     Dates: end: 200704
  7. BYETTA [Suspect]
     Active Substance: EXENATIDE
     Indication: TYPE 2 DIABETES MELLITUS
     Route: 058

REACTIONS (10)
  - Blood glucose increased [Not Recovered/Not Resolved]
  - Underdose [Unknown]
  - Blood glucose fluctuation [Unknown]
  - Injection site mass [Not Recovered/Not Resolved]
  - Feeling abnormal [Unknown]
  - Incorrect dose administered [Recovered/Resolved]
  - Drug effect decreased [Unknown]
  - Pain [Unknown]
  - Fatigue [Unknown]
  - Injection site bruising [Not Recovered/Not Resolved]

NARRATIVE: CASE EVENT DATE: 2007
